FAERS Safety Report 12165562 (Version 1)
Quarter: 2016Q1

REPORT INFORMATION
  Report Type: Spontaneous
  Country: KR (occurrence: KR)
  Receive Date: 20160309
  Receipt Date: 20160309
  Transmission Date: 20160526
  Serious: Yes (Other)
  Sender: FDA-Public Use
  Company Number: KR-ACTAVIS-2016-04906

PATIENT
  Age: 43 Year
  Sex: Female

DRUGS (7)
  1. CAPECITABINE (UNKNOWN) [Suspect]
     Active Substance: CAPECITABINE
     Indication: BREAST CANCER
     Dosage: 2000 MG/M2, CYCLICAL
     Route: 065
     Dates: start: 201301
  2. LAPATINIB [Suspect]
     Active Substance: LAPATINIB
     Indication: BREAST CANCER
     Dosage: 1250 MG, DAILY
     Route: 065
     Dates: start: 201301
  3. CAPECITABINE (UNKNOWN) [Suspect]
     Active Substance: CAPECITABINE
     Dosage: 20% DOSE REDUCTION
     Route: 065
  4. LEVOTHYROXINE. [Concomitant]
     Active Substance: LEVOTHYROXINE
     Indication: HORMONE REPLACEMENT THERAPY
     Dosage: 75 ?G, DAILY
  5. DESMOPRESSIN ACETATE. [Concomitant]
     Active Substance: DESMOPRESSIN ACETATE
     Indication: HORMONE REPLACEMENT THERAPY
     Dosage: 50 ?G, BID
     Route: 065
  6. PACLITAXEL (UNKNOWN) [Suspect]
     Active Substance: PACLITAXEL
     Indication: BREAST CANCER
     Dosage: UNK, CYCLICAL
     Route: 065
  7. PREDNISOLONE. [Concomitant]
     Active Substance: PREDNISOLONE
     Indication: HORMONE REPLACEMENT THERAPY
     Dosage: IN DIVIDED DOSES EVERY MORNING AND AFTERNOON
     Route: 065

REACTIONS (6)
  - Intestinal sepsis [Unknown]
  - Nausea [Unknown]
  - Somnolence [Unknown]
  - Asthenia [Unknown]
  - Amnesia [Unknown]
  - Electrolyte imbalance [Unknown]
